FAERS Safety Report 24126815 (Version 1)
Quarter: 2024Q3

REPORT INFORMATION
  Report Type: Spontaneous
  Country: US (occurrence: US)
  Receive Date: 20240723
  Receipt Date: 20240723
  Transmission Date: 20241017
  Serious: No
  Sender: ELI LILLY AND CO
  Company Number: US-ELI_LILLY_AND_COMPANY-US202407012372

PATIENT
  Age: 40 Year
  Sex: Male

DRUGS (2)
  1. GALCANEZUMAB [Suspect]
     Active Substance: GALCANEZUMAB
     Indication: Cluster headache
     Dosage: 300 MG, MONTHLY (1/M)
     Route: 065
  2. GALCANEZUMAB [Suspect]
     Active Substance: GALCANEZUMAB
     Indication: Migraine

REACTIONS (3)
  - Injection site rash [Recovered/Resolved]
  - Injection site vesicles [Recovered/Resolved]
  - Injection site pruritus [Recovered/Resolved]
